FAERS Safety Report 25920833 (Version 1)
Quarter: 2025Q4

REPORT INFORMATION
  Report Type: Spontaneous
  Country: US (occurrence: US)
  Receive Date: 20251014
  Receipt Date: 20251014
  Transmission Date: 20260117
  Serious: Yes (Hospitalization, Other)
  Sender: PFIZER
  Company Number: US-PFIZER INC-202500166305

PATIENT
  Age: 84 Year
  Sex: Female

DRUGS (1)
  1. BRAFTOVI [Suspect]
     Active Substance: ENCORAFENIB
     Dosage: 75 MG, 4X/DAY (75 MG TAKE 4 CAPSULES DAILY)
     Route: 048
     Dates: end: 20250920

REACTIONS (4)
  - Atrial fibrillation [Unknown]
  - Back pain [Unknown]
  - Acne [Unknown]
  - Alopecia [Unknown]

NARRATIVE: CASE EVENT DATE: 20250920
